FAERS Safety Report 9759360 (Version 1)
Quarter: 2013Q4

REPORT INFORMATION
  Report Type: Spontaneous
  Country: US (occurrence: None)
  Receive Date: 20131216
  Receipt Date: 20131216
  Transmission Date: 20140711
  Serious: Yes (Other)
  Sender: FDA-Public Use
  Company Number: 163-21880-12040992 (0)

PATIENT
  Sex: 0

DRUGS (2)
  1. REVLIMID ( LENALIDOMIDE) ( CAPSULES) [Suspect]
     Indication: NON-HODGKIN^S LYMPHOMA
     Dosage: 5 MG, DAYS 1-21 OF 28 DAYS, PO
  2. RITUXIMAB [Suspect]
     Indication: NON-HODGKIN^S LYMPHOMA
     Dosage: 375 MG/M2, DAY 1 OF EVERY OTHER

REACTIONS (4)
  - Neutropenia [None]
  - Pneumonitis [None]
  - Retinal vein thrombosis [None]
  - Blindness [None]
